FAERS Safety Report 17203484 (Version 1)
Quarter: 2019Q4

REPORT INFORMATION
  Report Type: Report from Study
  Country: GB (occurrence: GB)
  Receive Date: 20191226
  Receipt Date: 20191226
  Transmission Date: 20200122
  Serious: Yes (Other)
  Sender: FDA-Public Use
  Company Number: GB-JNJFOC-20191235057

PATIENT
  Age: 59 Year
  Sex: Male

DRUGS (17)
  1. STELARA [Suspect]
     Active Substance: USTEKINUMAB
     Indication: CROHN^S DISEASE
     Route: 058
     Dates: start: 20180717
  2. COLESEVELAM [Concomitant]
     Active Substance: COLESEVELAM
  3. TRAMADOL HYDROCHLORIDE. [Concomitant]
     Active Substance: TRAMADOL HYDROCHLORIDE
  4. ZOVIRAX [Concomitant]
     Active Substance: ACYCLOVIR
  5. MATRIFEN [Concomitant]
     Active Substance: FENTANYL
  6. METOCLOPRAMIDE. [Concomitant]
     Active Substance: METOCLOPRAMIDE
  7. HYOSCINE BUTYLBROMIDE [Concomitant]
     Active Substance: BUTYLSCOPOLAMINE BROMIDE
  8. LANTUS [Concomitant]
     Active Substance: INSULIN GLARGINE
  9. PARACETAMOL [Concomitant]
     Active Substance: ACETAMINOPHEN
  10. MIRABEGRON [Concomitant]
     Active Substance: MIRABEGRON
  11. RANITIDINE. [Concomitant]
     Active Substance: RANITIDINE
  12. FOLIC ACID. [Concomitant]
     Active Substance: FOLIC ACID
  13. ALFACALCIDOL [Concomitant]
     Active Substance: ALFACALCIDOL
  14. AMLODIPINE [Concomitant]
     Active Substance: AMLODIPINE BESYLATE
  15. DIPROBASE                          /01132701/ [Concomitant]
  16. HYDROXOCOBALAMIN [Concomitant]
     Active Substance: HYDROXOCOBALAMIN
  17. SODIUM BICARBONATE. [Concomitant]
     Active Substance: SODIUM BICARBONATE

REACTIONS (6)
  - Haemorrhage [Unknown]
  - Renal impairment [Unknown]
  - Oral herpes [Recovering/Resolving]
  - Lymphoma [Unknown]
  - Skin cancer [Unknown]
  - Frequent bowel movements [Unknown]

NARRATIVE: CASE EVENT DATE: 20191215
